FAERS Safety Report 8724436 (Version 2)
Quarter: 2012Q4

REPORT INFORMATION
  Report Type: Spontaneous
  Country: AU (occurrence: None)
  Receive Date: 20120727
  Receipt Date: 20120831
  Transmission Date: 20130627
  Serious: No
  Sender: FDA-Public Use
  Company Number: DSU-2012-05868

PATIENT
  Sex: Male
  Weight: 78 kg

DRUGS (2)
  1. OLMETEC (OLMESARTAN MEDOXOMIL) [Suspect]
     Indication: BLOOD PRESSURE
     Dosage: (40 MG, BID)
     Route: 048
  2. PERINDOPRIL ERBUMINE [Suspect]
     Indication: BLOOD PRESSURE
     Dosage: UNKNOWN

REACTIONS (1)
  - Cardiomyopathy [None]
